FAERS Safety Report 6128717-1 (Version None)
Quarter: 2009Q1

REPORT INFORMATION
  Report Type: 
  Country: None (occurrence: None)
  Receive Date: 20090323
  Receipt Date: 20090323
  Transmission Date: 20090719
  Serious: Yes (Other)
  Sender: FDA-Public Use
  Company Number: US-PFIZER INC-2008151299

PATIENT

DRUGS (3)
  1. LIPITOR [Suspect]
  2. ACETYLSALICYLIC ACID [Concomitant]
     Dosage: UNK
  3. ANTIEPILEPTICS [Concomitant]

REACTIONS (5)
  - APATHY [None]
  - ARTHRALGIA [None]
  - FATIGUE [None]
  - MUSCLE SPASMS [None]
  - UNEVALUABLE EVENT [None]
